FAERS Safety Report 10581879 (Version 1)
Quarter: 2014Q4

REPORT INFORMATION
  Report Type: Spontaneous
  Country: PT (occurrence: PT)
  Receive Date: 20141113
  Receipt Date: 20141113
  Transmission Date: 20150529
  Serious: Yes (Other)
  Sender: FDA-Public Use
  Company Number: PT-BAYER-2014-165573

PATIENT
  Age: 57 Year
  Sex: Male

DRUGS (1)
  1. ACETYLSALICYLIC ACID (} 100 MG) [Suspect]
     Active Substance: ASPIRIN
     Indication: CEREBRAL ARTERY OCCLUSION

REACTIONS (5)
  - Hemiparesis [Recovered/Resolved]
  - Off label use [None]
  - Dizziness [Recovered/Resolved]
  - Balance disorder [Recovered/Resolved]
  - Diplopia [Recovered/Resolved]
